FAERS Safety Report 7216557-1 (Version None)
Quarter: 2011Q1

REPORT INFORMATION
  Report Type: 
  Country: None (occurrence: None)
  Receive Date: 20110110
  Receipt Date: 20110105
  Transmission Date: 20110831
  Serious: Yes (Death, Hospitalization, Other)
  Sender: FDA-Public Use
  Company Number: FR-AMGEN-FRASP2010006888

PATIENT

DRUGS (8)
  1. NEXIUM [Concomitant]
  2. TRIATEC [Concomitant]
     Dosage: 5 MG, SCORED TABLET
  3. ENBREL [Suspect]
     Indication: RHEUMATOID ARTHRITIS
     Dosage: UNK UNK, UNK
     Dates: start: 20031204, end: 20090316
  4. PLAVIX [Concomitant]
  5. CORTISONE [Concomitant]
     Dosage: 12.5 MG, UNK
  6. ENBREL [Suspect]
     Dosage: 25 MG, WEEKLY
     Route: 058
     Dates: start: 20101026, end: 20101116
  7. EFFERALGAN [Concomitant]
  8. CORTANCYL [Concomitant]

REACTIONS (10)
  - ARTHRALGIA [None]
  - CARDIO-RESPIRATORY ARREST [None]
  - NAUSEA [None]
  - OEDEMA [None]
  - DIARRHOEA [None]
  - RENAL FAILURE ACUTE [None]
  - HYPOGLYCAEMIA [None]
  - FATIGUE [None]
  - HEPATIC FAILURE [None]
  - CONVULSION [None]
